FAERS Safety Report 16105511 (Version 1)
Quarter: 2019Q1

REPORT INFORMATION
  Report Type: Spontaneous
  Country: FR (occurrence: FR)
  Receive Date: 20190322
  Receipt Date: 20190322
  Transmission Date: 20190418
  Serious: Yes (Life-Threatening, Hospitalization)
  Sender: FDA-Public Use
  Company Number: FR-BAYER-2019-056419

PATIENT
  Age: 41 Year
  Sex: Female
  Weight: 65 kg

DRUGS (1)
  1. MIRENA [Suspect]
     Active Substance: LEVONORGESTREL
     Indication: CONTRACEPTION
     Dosage: 20 MCG/24HR, CONT
     Route: 015
     Dates: end: 20170925

REACTIONS (1)
  - HER-2 positive breast cancer [Recovering/Resolving]

NARRATIVE: CASE EVENT DATE: 20170919
